FAERS Safety Report 15834523 (Version 1)
Quarter: 2019Q1

REPORT INFORMATION
  Report Type: Spontaneous
  Country: IT (occurrence: IT)
  Receive Date: 20190116
  Receipt Date: 20190116
  Transmission Date: 20190417
  Serious: Yes (Other)
  Sender: FDA-Public Use
  Company Number: IT-ALLERGAN-1832901US

PATIENT
  Age: 76 Year
  Sex: Female

DRUGS (8)
  1. FORSTEO [Suspect]
     Active Substance: TERIPARATIDE
     Indication: OSTEOPOROSIS
     Dosage: UNK
     Route: 065
     Dates: start: 20180604
  2. COENZYME Q10 [Concomitant]
     Active Substance: UBIDECARENONE
  3. TACHIPIRINA [Concomitant]
     Active Substance: ACETAMINOPHEN
     Indication: PAIN
  4. FENOFIBRATE. [Concomitant]
     Active Substance: FENOFIBRATE
  5. ORYZA LONGISTAMINATA [Concomitant]
  6. NEBIVOLOL HCL - BP [Suspect]
     Active Substance: NEBIVOLOL
     Indication: BLOOD PRESSURE INCREASED
     Dosage: UNK
     Route: 065
  7. GAMMA ORYZANOL [Concomitant]
     Active Substance: GAMMA ORYZANOL
  8. XANAX [Concomitant]
     Active Substance: ALPRAZOLAM
     Indication: ANXIOLYTIC THERAPY
     Dosage: UNK

REACTIONS (15)
  - Dislocation of vertebra [Unknown]
  - Dry mouth [Unknown]
  - Tooth disorder [Unknown]
  - Drug ineffective [Unknown]
  - Back pain [Unknown]
  - Blood pressure decreased [Unknown]
  - Asthenia [Unknown]
  - Injection site erythema [Unknown]
  - Anxiety [Unknown]
  - Dental caries [Unknown]
  - Pollakiuria [Unknown]
  - Spinal pain [Unknown]
  - Injection site bruising [Unknown]
  - Spinal fracture [Unknown]
  - Injection site coldness [Unknown]

NARRATIVE: CASE EVENT DATE: 201809
